FAERS Safety Report 8102334-6 (Version None)
Quarter: 2012Q1

REPORT INFORMATION
  Report Type: 
  Country: None (occurrence: None)
  Receive Date: 20120201
  Receipt Date: 20120126
  Transmission Date: 20120608
  Serious: No
  Sender: FDA-Public Use
  Company Number: US-PFIZER INC-2012022925

PATIENT
  Sex: Male
  Weight: 129.3 kg

DRUGS (1)
  1. LYRICA [Suspect]
     Indication: NEUROPATHY PERIPHERAL
     Dosage: 75 MG, 2X/DAY
     Dates: start: 20111201, end: 20120124

REACTIONS (4)
  - PAIN IN EXTREMITY [None]
  - INSOMNIA [None]
  - TINNITUS [None]
  - DIZZINESS [None]
